FAERS Safety Report 23808769 (Version 1)
Quarter: 2024Q2

REPORT INFORMATION
  Report Type: Other
  Country: JP (occurrence: JP)
  Receive Date: 20240502
  Receipt Date: 20240502
  Transmission Date: 20240716
  Serious: Yes (Other)
  Sender: FDA-Public Use
  Company Number: JP-CHUGAI-2024014344

PATIENT
  Age: 78 Year
  Sex: Female

DRUGS (1)
  1. ACTEMRA [Suspect]
     Active Substance: TOCILIZUMAB
     Indication: Still^s disease
     Route: 065

REACTIONS (5)
  - Infection [Unknown]
  - Hyperkeratosis [Recovering/Resolving]
  - Oedema peripheral [Recovering/Resolving]
  - Erythema [Recovering/Resolving]
  - Off label use [Unknown]

NARRATIVE: CASE EVENT DATE: 20200201
